FAERS Safety Report 15706721 (Version 1)
Quarter: 2018Q4

REPORT INFORMATION
  Report Type: Spontaneous
  Country: JP (occurrence: JP)
  Receive Date: 20181210
  Receipt Date: 20181210
  Transmission Date: 20190205
  Serious: Yes (Hospitalization, Other)
  Sender: FDA-Public Use
  Company Number: JP-ALLERGAN-1851965US

PATIENT
  Age: 59 Year
  Sex: Female

DRUGS (2)
  1. BOTOX [Suspect]
     Active Substance: ONABOTULINUMTOXINA
     Indication: TORTICOLLIS
     Dosage: ACTUAL: 240 UNITS FOR UPPER LIMB, AND A TOTAL OF 110 UNITS FOR NECK
     Route: 030
     Dates: start: 20181009, end: 20181009
  2. BOTOX [Suspect]
     Active Substance: ONABOTULINUMTOXINA
     Indication: MUSCLE SPASTICITY

REACTIONS (7)
  - Vocal cord dysfunction [Recovered/Resolved with Sequelae]
  - Multiple system atrophy [Unknown]
  - Pneumonia aspiration [Recovered/Resolved with Sequelae]
  - Dysphagia [Unknown]
  - Dyspnoea [Unknown]
  - Disease progression [Unknown]
  - Prescribed overdose [Unknown]

NARRATIVE: CASE EVENT DATE: 201810
